FAERS Safety Report 9151895 (Version 1)
Quarter: 2013Q1

REPORT INFORMATION
  Report Type: Report from Study
  Country: JP (occurrence: JP)
  Receive Date: 20130308
  Receipt Date: 20130308
  Transmission Date: 20140127
  Serious: Yes (Hospitalization)
  Sender: FDA-Public Use
  Company Number: JP-GLAXOSMITHKLINE-B0645028A

PATIENT
  Age: 7 Year
  Sex: Male
  Weight: 22 kg

DRUGS (34)
  1. ARRANON [Suspect]
     Indication: T-CELL TYPE ACUTE LEUKAEMIA
     Dosage: 650MGM2 PER DAY
     Route: 042
     Dates: start: 20091014, end: 20091018
  2. ARRANON [Suspect]
     Indication: T-CELL TYPE ACUTE LEUKAEMIA
     Dosage: 650MGM2 PER DAY
     Route: 042
     Dates: start: 20091110, end: 20091114
  3. DECADRON [Suspect]
     Indication: NEOPLASM MALIGNANT
     Route: 042
     Dates: start: 20091021, end: 20091025
  4. DECADRON [Suspect]
     Indication: NEOPLASM MALIGNANT
     Route: 042
     Dates: start: 20091117, end: 20091117
  5. DECADRON [Suspect]
     Indication: NEOPLASM MALIGNANT
     Route: 042
     Dates: start: 20091119, end: 20091119
  6. DECADRON [Suspect]
     Indication: NEOPLASM MALIGNANT
     Route: 042
     Dates: start: 20091121, end: 20091121
  7. CYLOCIDE [Suspect]
     Indication: NEOPLASM MALIGNANT
     Route: 042
     Dates: start: 20090904, end: 20090907
  8. CYLOCIDE [Suspect]
     Indication: NEOPLASM MALIGNANT
     Dates: start: 20090911, end: 20090914
  9. CYLOCIDE [Suspect]
     Indication: NEOPLASM MALIGNANT
     Dates: start: 20090925, end: 20090928
  10. CYLOCIDE [Suspect]
     Indication: NEOPLASM MALIGNANT
     Dates: start: 20091021, end: 20091022
  11. CYLOCIDE [Suspect]
     Indication: NEOPLASM MALIGNANT
     Dates: start: 20091117, end: 20091121
  12. VEPESID [Suspect]
     Indication: NEOPLASM MALIGNANT
     Route: 042
     Dates: start: 20091023, end: 20091025
  13. VEPESID [Suspect]
     Indication: NEOPLASM MALIGNANT
     Route: 042
     Dates: start: 20091117, end: 20091121
  14. LEUNASE [Suspect]
     Indication: NEOPLASM MALIGNANT
     Route: 042
     Dates: start: 20091026, end: 20091026
  15. LEUNASE [Suspect]
     Indication: NEOPLASM MALIGNANT
     Route: 042
     Dates: start: 20091031, end: 20091031
  16. FUNGUARD [Suspect]
     Indication: PROPHYLAXIS
     Route: 042
     Dates: start: 20091027, end: 20091109
  17. FUNGUARD [Suspect]
     Indication: PROPHYLAXIS
     Route: 042
     Dates: start: 20091126, end: 20091203
  18. FIRSTCIN [Suspect]
     Indication: PROPHYLAXIS
     Route: 042
     Dates: start: 20091014, end: 20091018
  19. FIRSTCIN [Suspect]
     Indication: PROPHYLAXIS
     Route: 042
     Dates: start: 20091027, end: 20091109
  20. FIRSTCIN [Suspect]
     Indication: PROPHYLAXIS
     Route: 042
     Dates: start: 20091126, end: 20091203
  21. LEUKERIN [Concomitant]
     Indication: NEOPLASM MALIGNANT
     Route: 048
     Dates: start: 20090904, end: 20091001
  22. ENDOXAN [Concomitant]
     Indication: NEOPLASM MALIGNANT
     Dates: start: 20090904, end: 20090904
  23. ENDOXAN [Concomitant]
     Indication: NEOPLASM MALIGNANT
     Dates: start: 20090918, end: 20090918
  24. METHOTREXATE [Concomitant]
     Indication: NEOPLASM MALIGNANT
     Route: 042
     Dates: start: 20090904, end: 20090904
  25. METHOTREXATE [Concomitant]
     Indication: NEOPLASM MALIGNANT
     Dates: start: 20090918, end: 20090918
  26. METHOTREXATE [Concomitant]
     Indication: NEOPLASM MALIGNANT
     Dates: start: 20090925, end: 20090928
  27. SAXIZON [Concomitant]
     Indication: NEOPLASM MALIGNANT
     Dates: start: 20090904, end: 20090904
  28. SAXIZON [Concomitant]
     Indication: NEOPLASM MALIGNANT
     Dates: start: 20090918, end: 20090918
  29. BAKTAR [Concomitant]
     Indication: PROPHYLAXIS
     Route: 048
     Dates: start: 20090320, end: 20100111
  30. JUVELA [Concomitant]
     Indication: PROPHYLAXIS
     Route: 048
     Dates: start: 20090320, end: 20100111
  31. NEUQUINON [Concomitant]
     Indication: PROPHYLAXIS
     Route: 048
     Dates: start: 20090320, end: 20100111
  32. KANAMYCIN [Concomitant]
     Indication: PROPHYLAXIS
     Route: 048
     Dates: start: 20090320, end: 20100111
  33. POLYMYXIN-B SULFATE [Concomitant]
     Indication: PROPHYLAXIS
     Route: 048
     Dates: start: 20090320, end: 20100111
  34. AMPHOTERICIN B [Concomitant]
     Indication: PROPHYLAXIS
     Route: 048
     Dates: start: 20090320, end: 20100111

REACTIONS (3)
  - Pancytopenia [Recovered/Resolved]
  - Pancytopenia [Recovered/Resolved]
  - Liver disorder [Recovered/Resolved]
